FAERS Safety Report 7123953-X (Version None)
Quarter: 2010Q4

REPORT INFORMATION
  Report Type: 
  Country: None (occurrence: None)
  Receive Date: 20101126
  Receipt Date: 20101123
  Transmission Date: 20110411
  Serious: Yes (Other)
  Sender: FDA-Public Use
  Company Number: US-PFIZER INC-2010141034

PATIENT
  Sex: Male

DRUGS (2)
  1. TIKOSYN [Suspect]
     Indication: CARDIAC PACEMAKER INSERTION
     Dosage: UNK
     Dates: start: 20100101
  2. CARDIZEM [Concomitant]
     Dosage: UNK

REACTIONS (4)
  - DIZZINESS [None]
  - LUNG INFECTION [None]
  - SWELLING [None]
  - VISION BLURRED [None]
